FAERS Safety Report 6265014-8 (Version None)
Quarter: 2009Q3

REPORT INFORMATION
  Report Type: 
  Country: None (occurrence: None)
  Receive Date: 20090713
  Receipt Date: 20090630
  Transmission Date: 20100115
  Serious: Yes (Other)
  Sender: FDA-Public Use
  Company Number: US-JNJFOC-20090700506

PATIENT
  Age: 55 Year
  Sex: Male

DRUGS (9)
  1. INFLIXIMAB [Suspect]
     Indication: PSORIASIS
     Route: 042
  2. INFLIXIMAB [Suspect]
     Indication: PSORIATIC ARTHROPATHY
     Route: 042
  3. METOPROLOL TARTRATE [Concomitant]
  4. ATORVASTATIN CALCIUM [Concomitant]
  5. HYDROCODONE BITARTRATE [Concomitant]
  6. SULINDAC [Concomitant]
  7. AMITRIPTYLINE [Concomitant]
  8. CARISOPRODOL [Concomitant]
  9. SILDENAFIL [Concomitant]

REACTIONS (2)
  - LICHENOID KERATOSIS [None]
  - ORAL LICHEN PLANUS [None]
